FAERS Safety Report 6654633-2 (Version None)
Quarter: 2010Q1

REPORT INFORMATION
  Report Type: 
  Country: None (occurrence: None)
  Receive Date: 20100326
  Receipt Date: 20100301
  Transmission Date: 20100710
  Serious: Yes (Other)
  Sender: FDA-Public Use
  Company Number: PHHY2010US12393

PATIENT

DRUGS (1)
  1. FANAPT [Suspect]
     Dosage: TITRATION PACK, UNK
     Route: 048
     Dates: start: 20100224, end: 20100226

REACTIONS (3)
  - DIZZINESS [None]
  - ORTHOSTATIC HYPERTENSION [None]
  - VOMITING [None]
